FAERS Safety Report 25532039 (Version 1)
Quarter: 2025Q3

REPORT INFORMATION
  Report Type: Spontaneous
  Country: CN (occurrence: CN)
  Receive Date: 20250709
  Receipt Date: 20250709
  Transmission Date: 20251020
  Serious: Yes (Life-Threatening)
  Sender: GRIFOLS
  Company Number: CN-IGSA-BIG0036350

PATIENT
  Age: 69 Year
  Sex: Male

DRUGS (5)
  1. ALBUTEIN [Suspect]
     Active Substance: ALBUMIN HUMAN
     Indication: Blood albumin decreased
     Dosage: 20 GRAM, QD
     Route: 041
     Dates: start: 20250623, end: 20250624
  2. ALBUTEIN [Suspect]
     Active Substance: ALBUMIN HUMAN
     Route: 041
     Dates: start: 20250616, end: 20250616
  3. ALBUTEIN [Suspect]
     Active Substance: ALBUMIN HUMAN
     Route: 041
     Dates: start: 20250612, end: 20250612
  4. ALBUTEIN [Suspect]
     Active Substance: ALBUMIN HUMAN
     Route: 041
     Dates: start: 20250609, end: 20250609
  5. ALBUTEIN [Suspect]
     Active Substance: ALBUMIN HUMAN
     Route: 041
     Dates: start: 20250604, end: 20250604

REACTIONS (2)
  - Dyspnoea [Recovering/Resolving]
  - Dyspnoea [Recovering/Resolving]

NARRATIVE: CASE EVENT DATE: 20250623
